FAERS Safety Report 6698105-8 (Version None)
Quarter: 2010Q2

REPORT INFORMATION
  Report Type: 
  Country: None (occurrence: None)
  Receive Date: 20100426
  Receipt Date: 20100426
  Transmission Date: 20101027
  Serious: Yes (Life-Threatening, Hospitalization, Disabling)
  Sender: FDA-Public Use
  Company Number: None

PATIENT
  Age: 84 Year
  Sex: Female
  Weight: 65.318 kg

DRUGS (2)
  1. BONIVA [Suspect]
     Dosage: IN THE PAST - OVER 2 MOS.
  2. FOSAMAX [Suspect]
     Dosage: IN THE PAST - OVER 2 MOS.

REACTIONS (2)
  - FALL [None]
  - FEMUR FRACTURE [None]
